FAERS Safety Report 6864206-4 (Version None)
Quarter: 2010Q3

REPORT INFORMATION
  Report Type: 
  Country: None (occurrence: None)
  Receive Date: 20100721
  Receipt Date: 20080319
  Transmission Date: 20110219
  Serious: No
  Sender: FDA-Public Use
  Company Number: US-PFIZER INC-2008026016

PATIENT
  Sex: Female
  Weight: 42.272 kg

DRUGS (5)
  1. CHANTIX [Suspect]
     Indication: SMOKING CESSATION THERAPY
     Dates: start: 20080310
  2. DURAGESIC-100 [Concomitant]
  3. FUROSEMIDE [Concomitant]
  4. KLONOPIN [Concomitant]
  5. AMBIEN [Concomitant]

REACTIONS (2)
  - MALAISE [None]
  - NAUSEA [None]
